FAERS Safety Report 8789030 (Version 1)
Quarter: 2012Q4

REPORT INFORMATION
  Report Type: 
  Country: US (occurrence: US)
  Receive Date: 20120916
  Receipt Date: 20120916
  Transmission Date: 20130627
  Serious: No
  Sender: FDA-Public Use
  Company Number: US-009507513-1208USA011608

PATIENT

DRUGS (3)
  1. PEGINTRON [Suspect]
     Indication: HEPATITIS C
     Dosage: UNK
     Dates: start: 20120523
  2. REBETOL [Suspect]
     Indication: HEPATITIS C
     Dosage: UNK
     Dates: start: 20120523
  3. VICTRELIS [Suspect]
     Indication: HEPATITIS C
     Dosage: UNK
     Dates: start: 20120620

REACTIONS (4)
  - Epistaxis [Unknown]
  - Nasal congestion [Unknown]
  - Oedema peripheral [Unknown]
  - Haemoglobin decreased [Unknown]
